FAERS Safety Report 23274216 (Version 1)
Quarter: 2023Q4

REPORT INFORMATION
  Report Type: Spontaneous
  Country: CN (occurrence: None)
  Receive Date: 20231208
  Receipt Date: 20231208
  Transmission Date: 20240110
  Serious: Yes (Hospitalization)
  Sender: FDA-Public Use
  Company Number: CN-ROCHE-3471631

PATIENT
  Sex: Female
  Weight: 63.5 kg

DRUGS (8)
  1. PERJETA [Suspect]
     Active Substance: PERTUZUMAB
     Indication: Breast cancer
     Dosage: D1
     Route: 041
     Dates: start: 20231124
  2. PERJETA [Suspect]
     Active Substance: PERTUZUMAB
     Dosage: FOR CHEMOTHERAPY
     Route: 041
  3. TRASTUZUMAB [Suspect]
     Active Substance: TRASTUZUMAB
     Indication: Breast cancer
     Dosage: D1
     Route: 041
     Dates: start: 20231124
  4. TRASTUZUMAB [Suspect]
     Active Substance: TRASTUZUMAB
     Dosage: FOR CHEMOTHERAPY
     Route: 041
  5. CARBOPLATIN [Suspect]
     Active Substance: CARBOPLATIN
     Indication: Breast cancer
     Dosage: D2
     Route: 041
     Dates: start: 20231125
  6. CARBOPLATIN [Suspect]
     Active Substance: CARBOPLATIN
     Dosage: FOR CHEMOTHERAPY
     Route: 041
  7. DOCETAXEL [Suspect]
     Active Substance: DOCETAXEL\DOCETAXEL ANHYDROUS
     Indication: Breast cancer
     Dosage: D2
     Route: 041
     Dates: start: 20231125
  8. DOCETAXEL [Suspect]
     Active Substance: DOCETAXEL\DOCETAXEL ANHYDROUS
     Dosage: FOR CHEMOTHERAPY
     Route: 041

REACTIONS (3)
  - Asthenia [Recovering/Resolving]
  - Pyrexia [Recovering/Resolving]
  - Myelosuppression [Recovering/Resolving]
